FAERS Safety Report 24837923 (Version 1)
Quarter: 2025Q1

REPORT INFORMATION
  Report Type: Spontaneous
  Country: SE (occurrence: SE)
  Receive Date: 20250113
  Receipt Date: 20250113
  Transmission Date: 20250408
  Serious: Yes (Disabling)
  Sender: TEVA
  Company Number: None

PATIENT
  Age: 19 Year
  Sex: Male

DRUGS (1)
  1. FINASTERIDE [Suspect]
     Active Substance: FINASTERIDE
     Indication: Alopecia
     Route: 065
     Dates: start: 2019

REACTIONS (3)
  - Self-destructive behaviour [Unknown]
  - Suicidal behaviour [Unknown]
  - Aggression [Unknown]

NARRATIVE: CASE EVENT DATE: 20190101
